FAERS Safety Report 21186109 (Version 1)
Quarter: 2022Q3

REPORT INFORMATION
  Report Type: Spontaneous
  Country: US (occurrence: US)
  Receive Date: 20220808
  Receipt Date: 20220808
  Transmission Date: 20221027
  Serious: Yes (Death, Life-Threatening)
  Sender: FDA-Public Use
  Company Number: US-STRIDES ARCOLAB LIMITED-2022SP009888

PATIENT
  Age: 71 Year
  Sex: Male

DRUGS (1)
  1. AMANTADINE [Suspect]
     Active Substance: AMANTADINE
     Indication: Upper respiratory tract infection
     Dosage: 100 MILLIGRAM, BID
     Route: 065

REACTIONS (2)
  - Cardiac arrest [Fatal]
  - Off label use [Unknown]
